FAERS Safety Report 4552005-8 (Version None)
Quarter: 2005Q1

REPORT INFORMATION
  Report Type: 
  Country: None (occurrence: None)
  Receive Date: 20050112
  Receipt Date: 20041220
  Transmission Date: 20050727
  Serious: No
  Sender: FDA-Public Use
  Company Number: A01200406443

PATIENT
  Age: 28 Year
  Sex: Male

DRUGS (1)
  1. (AMIODARONE) [Suspect]
     Indication: VENTRICULAR TACHYCARDIA

REACTIONS (2)
  - SYNCOPE [None]
  - VENTRICULAR FIBRILLATION [None]
